FAERS Safety Report 24252004 (Version 1)
Quarter: 2024Q3

REPORT INFORMATION
  Report Type: Spontaneous
  Country: ZA (occurrence: None)
  Receive Date: 20240827
  Receipt Date: 20240827
  Transmission Date: 20241017
  Serious: Yes (Hospitalization)
  Sender: ASTRAZENECA
  Company Number: 2024A189606

PATIENT
  Age: 58 Year
  Sex: Female

DRUGS (10)
  1. DAPAGLIFLOZIN PROPANEDIOL [Suspect]
     Active Substance: DAPAGLIFLOZIN PROPANEDIOL
     Indication: Diabetes mellitus
     Dosage: 10.0MG UNKNOWN
     Route: 048
  2. LOSARTAN POTASSIUM [Concomitant]
     Active Substance: LOSARTAN POTASSIUM
     Indication: Hypertension
     Dosage: 50.0MG UNKNOWN
     Route: 048
  3. CLOPIDOGREL BISULFATE [Concomitant]
     Active Substance: CLOPIDOGREL BISULFATE
     Indication: Thrombosis
     Dosage: 75.0MG UNKNOWN
     Route: 058
  4. ECOTRIN [Concomitant]
     Active Substance: ASPIRIN
     Indication: Thrombosis
     Dosage: 81.0MG UNKNOWN
     Route: 048
  5. LIPOGEN [Concomitant]
     Indication: Blood cholesterol
     Dosage: 20.0MG UNKNOWN
     Route: 048
  6. SYNALEVE [Concomitant]
     Indication: Pain
     Route: 048
  7. AZARGA [Concomitant]
     Active Substance: BRINZOLAMIDE\TIMOLOL MALEATE
     Indication: Glaucoma
     Route: 047
  8. PENDINE [Concomitant]
     Indication: Hypertension
     Dosage: 10.0MG UNKNOWN
     Route: 048
  9. DULOXETINE HYDROCHLORIDE [Concomitant]
     Active Substance: DULOXETINE HYDROCHLORIDE
     Indication: Depression
     Dosage: 30.0MG UNKNOWN
     Route: 048
  10. FEROVANCE [Concomitant]
     Route: 048

REACTIONS (1)
  - Pulse absent [Unknown]
